FAERS Safety Report 22032919 (Version 1)
Quarter: 2023Q1

REPORT INFORMATION
  Report Type: Spontaneous
  Country: NZ (occurrence: NZ)
  Receive Date: 20230224
  Receipt Date: 20230224
  Transmission Date: 20230418
  Serious: Yes (Hospitalization)
  Sender: FDA-Public Use
  Company Number: NZ-MYLANLABS-2023M1018217

PATIENT
  Age: 29 Year

DRUGS (3)
  1. SULFAMETHOXAZOLE\TRIMETHOPRIM [Suspect]
     Active Substance: SULFAMETHOXAZOLE\TRIMETHOPRIM
     Indication: Otitis externa bacterial
     Dosage: UNK
     Route: 048
  2. SULFAMETHOXAZOLE\TRIMETHOPRIM [Suspect]
     Active Substance: SULFAMETHOXAZOLE\TRIMETHOPRIM
     Indication: Staphylococcal infection
  3. SULFAMETHOXAZOLE\TRIMETHOPRIM [Suspect]
     Active Substance: SULFAMETHOXAZOLE\TRIMETHOPRIM
     Indication: Furuncle

REACTIONS (6)
  - Wrong product administered [Unknown]
  - Product administration error [Unknown]
  - Purpura fulminans [Recovering/Resolving]
  - Disseminated intravascular coagulation [Recovering/Resolving]
  - Acute kidney injury [Recovering/Resolving]
  - Hepatic enzyme abnormal [Recovering/Resolving]
